FAERS Safety Report 23884175 (Version 1)
Quarter: 2024Q2

REPORT INFORMATION
  Report Type: Spontaneous
  Country: ES (occurrence: ES)
  Receive Date: 20240522
  Receipt Date: 20240522
  Transmission Date: 20240716
  Serious: Yes (Hospitalization)
  Sender: FDA-Public Use
  Company Number: ES-AEMPS-1519033

PATIENT
  Age: 35 Year
  Sex: Male

DRUGS (6)
  1. TOPIRAMATE [Interacting]
     Active Substance: TOPIRAMATE
     Indication: Epilepsy
     Dosage: 600 MILLIGRAM, ONCE A DAY
     Route: 048
     Dates: start: 200808
  2. LITHIUM CARBONATE [Interacting]
     Active Substance: LITHIUM CARBONATE
     Indication: Autism spectrum disorder
     Dosage: 1200 MILLIGRAM, ONCE A DAY
     Route: 048
     Dates: start: 201212, end: 20240208
  3. OLANZAPINE [Interacting]
     Active Substance: OLANZAPINE
     Indication: Epilepsy
     Dosage: 40 MILLIGRAM, ONCE A DAY
     Route: 048
     Dates: start: 20120612
  4. VALPROATE SODIUM [Concomitant]
     Active Substance: VALPROATE SODIUM
     Indication: Epilepsy
     Dosage: 1000 MILLIGRAM, ONCE A DAY
     Route: 048
     Dates: start: 200808
  5. SERTRALINE HYDROCHLORIDE [Concomitant]
     Active Substance: SERTRALINE HYDROCHLORIDE
     Indication: Epilepsy
     Dosage: 200 MILLIGRAM, ONCE A DAY
     Route: 048
     Dates: start: 200808
  6. VIMPAT [Concomitant]
     Active Substance: LACOSAMIDE
     Indication: Epilepsy
     Dosage: 450 MILLIGRAM, ONCE A DAY
     Route: 048
     Dates: start: 20120612

REACTIONS (4)
  - Asthenia [Recovered/Resolved]
  - Apathy [Recovered/Resolved]
  - Decreased appetite [Recovered/Resolved]
  - Toxicity to various agents [Recovered/Resolved]

NARRATIVE: CASE EVENT DATE: 20240209
